FAERS Safety Report 20002319 (Version 2)
Quarter: 2021Q4

REPORT INFORMATION
  Report Type: Report from Study
  Country: US (occurrence: US)
  Receive Date: 20211027
  Receipt Date: 20211110
  Transmission Date: 20220304
  Serious: Yes (Other)
  Sender: FDA-Public Use
  Company Number: US-CELGENE-USA-20211006063

PATIENT
  Sex: Male

DRUGS (28)
  1. POMALYST [Suspect]
     Active Substance: POMALIDOMIDE
     Indication: Plasma cell myeloma
     Dosage: 3 MILLIGRAM
     Route: 048
     Dates: start: 20160907, end: 20190130
  2. CITARINOSTAT [Suspect]
     Active Substance: CITARINOSTAT
     Indication: Plasma cell myeloma
     Dosage: 180 MILLIGRAM
     Route: 048
     Dates: start: 20160907, end: 20190130
  3. DEXAMETHASONE [Suspect]
     Active Substance: DEXAMETHASONE
     Indication: Plasma cell myeloma
     Route: 048
     Dates: start: 20160907, end: 20190130
  4. ZOLOFT [Concomitant]
     Active Substance: SERTRALINE HYDROCHLORIDE
     Indication: Adjustment disorder with depressed mood
     Dosage: 25 MILLIGRAM
     Route: 048
     Dates: start: 20110114
  5. ATORVASTATIN [Concomitant]
     Active Substance: ATORVASTATIN
     Indication: Hyperlipidaemia
     Dosage: 10 MILLIGRAM
     Route: 048
     Dates: start: 20110114
  6. ACYCLOVIR [Concomitant]
     Active Substance: ACYCLOVIR
     Indication: Infection prophylaxis
     Dosage: 800 MILLIGRAM
     Route: 048
     Dates: start: 20160810
  7. LORAZEPAM [Concomitant]
     Active Substance: LORAZEPAM
     Indication: Anxiety
     Route: 048
     Dates: start: 20160114
  8. ASPIRIN [Concomitant]
     Active Substance: ASPIRIN
     Indication: Thrombosis prophylaxis
     Dosage: 81 MILLIGRAM
     Route: 048
     Dates: start: 20160907
  9. AMLODIPINE [Concomitant]
     Active Substance: AMLODIPINE BESYLATE
     Indication: Hypertension
     Dosage: 5 MILLIGRAM
     Route: 048
     Dates: start: 20160810
  10. MORPHINE [Concomitant]
     Active Substance: MORPHINE
     Indication: Premedication
     Route: 048
     Dates: start: 20160810, end: 20160810
  11. COCOA BUTTER [Concomitant]
     Active Substance: COCOA BUTTER
     Indication: Neuropathy peripheral
     Route: 061
     Dates: start: 20170222
  12. COLESTIPOL [Concomitant]
     Active Substance: COLESTIPOL
     Indication: Diarrhoea
     Dosage: 2 GRAM
     Route: 048
     Dates: start: 20170215
  13. Sodium di-monosphosphate-K(K-phos neutral) [Concomitant]
     Indication: Hypophosphataemia
     Route: 048
     Dates: start: 20170517, end: 20170517
  14. Sodium di-monosphosphate-K(K-phos neutral) [Concomitant]
     Route: 048
     Dates: start: 20170517, end: 20170616
  15. Sodium di-monosphosphate-K(K-phos neutral) [Concomitant]
     Route: 048
     Dates: start: 20170614, end: 20170614
  16. BACITRACIN [Concomitant]
     Active Substance: BACITRACIN
     Indication: Thermal burn
     Route: 061
     Dates: start: 20161130, end: 20161228
  17. APIXABAN [Concomitant]
     Active Substance: APIXABAN
     Indication: Superficial vein thrombosis
     Dosage: 10 MILLIGRAM
     Route: 048
     Dates: start: 20171122
  18. ZITHROMAX [Concomitant]
     Active Substance: AZITHROMYCIN DIHYDRATE
     Indication: Upper respiratory tract infection
     Route: 048
     Dates: start: 201710, end: 201710
  19. ZITHROMAX [Concomitant]
     Active Substance: AZITHROMYCIN DIHYDRATE
     Route: 048
     Dates: start: 20181003, end: 20181007
  20. B complex Vitamins (B complex 1) [Concomitant]
     Indication: Neuropathy peripheral
     Dosage: 1 TABLET
     Route: 048
     Dates: start: 20170322
  21. PREDNISONE [Concomitant]
     Active Substance: PREDNISONE
     Indication: Fatigue
     Route: 048
     Dates: start: 20170517
  22. LEVAQUIN [Concomitant]
     Active Substance: LEVOFLOXACIN
     Indication: Upper respiratory tract infection
     Route: 048
     Dates: start: 201801, end: 201801
  23. AUGMENTIN [Concomitant]
     Active Substance: AMOXICILLIN\CLAVULANATE POTASSIUM
     Indication: Conjunctivitis
     Route: 048
     Dates: start: 201612, end: 201612
  24. AUGMENTIN [Concomitant]
     Active Substance: AMOXICILLIN\CLAVULANATE POTASSIUM
     Indication: Upper respiratory tract infection
  25. ADVIL [Concomitant]
     Active Substance: IBUPROFEN
     Indication: Neck pain
     Route: 048
     Dates: start: 201811, end: 201812
  26. POTASSIUM CHLORIDE [Concomitant]
     Active Substance: POTASSIUM CHLORIDE
     Indication: Hypokalaemia
     Route: 048
     Dates: start: 20190213, end: 20190905
  27. POTASSIUM CHLORIDE [Concomitant]
     Active Substance: POTASSIUM CHLORIDE
     Indication: Prophylaxis
  28. NEUPOGEN [Concomitant]
     Active Substance: FILGRASTIM
     Indication: Neutrophil count decreased
     Route: 058
     Dates: start: 20190213, end: 20190213

REACTIONS (1)
  - Acute myeloid leukaemia [Not Recovered/Not Resolved]

NARRATIVE: CASE EVENT DATE: 20210607
